FAERS Safety Report 5827114-3 (Version None)
Quarter: 2008Q3

REPORT INFORMATION
  Report Type: 
  Country: None (occurrence: None)
  Receive Date: 20080729
  Receipt Date: 20080729
  Transmission Date: 20090109
  Serious: Yes (Death)
  Sender: FDA-Public Use
  Company Number: None

PATIENT
  Sex: Female
  Weight: 52.27 kg

DRUGS (1)
  1. TEMOZOLOMIDE [Suspect]
     Dosage: 125 MG
     Dates: end: 20080411

REACTIONS (7)
  - CARDIAC ARREST [None]
  - COUGH [None]
  - DYSPNOEA [None]
  - HYPONATRAEMIA [None]
  - INSOMNIA [None]
  - LUNG DISORDER [None]
  - PLEURAL EFFUSION [None]
